FAERS Safety Report 22045246 (Version 2)
Quarter: 2023Q1

REPORT INFORMATION
  Report Type: Spontaneous
  Country: FR (occurrence: FR)
  Receive Date: 20230228
  Receipt Date: 20230307
  Transmission Date: 20230418
  Serious: Yes (Hospitalization)
  Sender: FDA-Public Use
  Company Number: None

PATIENT
  Age: 24 Year
  Sex: Male
  Weight: 59 kg

DRUGS (9)
  1. ABILIFY MAINTENA [Suspect]
     Active Substance: ARIPIPRAZOLE
     Indication: Delirium
     Dosage: 1 DF TOTAL
     Route: 030
     Dates: start: 20221213, end: 20221213
  2. ARIPIPRAZOLE [Suspect]
     Active Substance: ARIPIPRAZOLE
     Indication: Delirium
     Dosage: 15 MG, QD
     Route: 048
     Dates: start: 20221130, end: 20221215
  3. LOXAPINE SUCCINATE [Suspect]
     Active Substance: LOXAPINE SUCCINATE
     Indication: Delirium
     Dosage: 150 MG, QD (24 HRS)
     Route: 048
     Dates: start: 20221214, end: 20221216
  4. TROPATEPINE HYDROCHLORIDE [Suspect]
     Active Substance: TROPATEPINE HYDROCHLORIDE
     Indication: Delirium
     Dosage: 10 MG, QD (24 HRS)
     Route: 048
     Dates: start: 20221208, end: 20221221
  5. AMISULPRIDE [Suspect]
     Active Substance: AMISULPRIDE
     Indication: Delirium
     Dosage: 400 MG, QD (24 HRS)
     Route: 048
     Dates: start: 20221118, end: 20221221
  6. TRIMEPRAZINE [Suspect]
     Active Substance: TRIMEPRAZINE
     Indication: Delirium
     Dosage: (1/12 ML IN 24 HOURS)
     Route: 048
     Dates: start: 20221122, end: 20221221
  7. LORAZEPAM [Suspect]
     Active Substance: LORAZEPAM
     Indication: Delirium
     Dosage: 3 MG, QD (SCORED TABLET)
     Route: 048
     Dates: start: 20221122, end: 20221213
  8. VALIUM [Suspect]
     Active Substance: DIAZEPAM
     Indication: Delirium
     Dosage: 150 DRP, 1/12 ML, EVERY 24 HOURS)
     Route: 048
     Dates: start: 20221214, end: 20221230
  9. CYAMEMAZINE [Suspect]
     Active Substance: CYAMEMAZINE
     Indication: Delirium
     Dosage: 30 DRP (1/12 MILLILITRE) AS NECESSARY
     Route: 048
     Dates: start: 20221118, end: 20221212

REACTIONS (2)
  - Bladder dilatation [Recovered/Resolved]
  - Product use in unapproved indication [Unknown]

NARRATIVE: CASE EVENT DATE: 20221215
